FAERS Safety Report 6215776-0 (Version None)
Quarter: 2009Q2

REPORT INFORMATION
  Report Type: 
  Country: None (occurrence: None)
  Receive Date: 20090605
  Receipt Date: 20090602
  Transmission Date: 20091009
  Serious: Yes (Death, Life-Threatening, Other)
  Sender: FDA-Public Use
  Company Number: JP-JNJFOC-20061002489

PATIENT
  Sex: Male
  Weight: 62 kg

DRUGS (4)
  1. LEUSTATIN [Suspect]
     Indication: HAIRY CELL LEUKAEMIA
     Route: 041
  2. FILGRASTIM [Concomitant]
     Route: 041
     Dates: end: 20050426
  3. CONCENTRATED HUMAN BLOOD PLATELET [Concomitant]
     Route: 041
  4. WASHED HUMAN RBC [Concomitant]
     Route: 041

REACTIONS (13)
  - ANAEMIA [None]
  - BLOOD LACTATE DEHYDROGENASE INCREASED [None]
  - C-REACTIVE PROTEIN INCREASED [None]
  - HEPATIC FUNCTION ABNORMAL [None]
  - HYPERTRIGLYCERIDAEMIA [None]
  - HYPOCHOLESTEROLAEMIA [None]
  - HYPONATRAEMIA [None]
  - NEUTROPENIA [None]
  - PLATELET COUNT DECREASED [None]
  - PYREXIA [None]
  - RENAL FAILURE ACUTE [None]
  - RENAL IMPAIRMENT [None]
  - WHITE BLOOD CELL COUNT DECREASED [None]
